FAERS Safety Report 25830444 (Version 1)
Quarter: 2025Q3

REPORT INFORMATION
  Report Type: Spontaneous
  Country: US (occurrence: None)
  Receive Date: 20250919
  Receipt Date: 20250919
  Transmission Date: 20251020
  Serious: Yes (Other)
  Sender: FDA-CTU
  Company Number: None

PATIENT
  Age: 80 Year
  Sex: Male

DRUGS (1)
  1. BIOTIN\FINASTERIDE\KETOCONAZOLE\MINOXIDIL [Suspect]
     Active Substance: BIOTIN\FINASTERIDE\KETOCONAZOLE\MINOXIDIL
     Indication: Alopecia
     Dosage: FREQUENCY : DAILY;?
     Route: 061
     Dates: start: 20240920, end: 20250603

REACTIONS (2)
  - Application site pruritus [None]
  - Application site vesicles [None]

NARRATIVE: CASE EVENT DATE: 20250603
